FAERS Safety Report 14151950 (Version 2)
Quarter: 2017Q4

REPORT INFORMATION
  Report Type: Spontaneous
  Country: JP (occurrence: JP)
  Receive Date: 20171102
  Receipt Date: 20171115
  Transmission Date: 20180321
  Serious: Yes (Death, Hospitalization)
  Sender: FDA-Public Use
  Company Number: JP-ASTELLAS-2017JP019574

PATIENT
  Age: 74 Year
  Sex: Male

DRUGS (1)
  1. XTANDI [Suspect]
     Active Substance: ENZALUTAMIDE
     Indication: PROSTATE CANCER
     Route: 048
     Dates: end: 20171018

REACTIONS (2)
  - Off label use [Unknown]
  - Cerebral infarction [Fatal]

NARRATIVE: CASE EVENT DATE: 20171012
